FAERS Safety Report 20168329 (Version 1)
Quarter: 2021Q4

REPORT INFORMATION
  Report Type: Spontaneous
  Country: GB (occurrence: GB)
  Receive Date: 20211210
  Receipt Date: 20211210
  Transmission Date: 20220303
  Serious: Yes (Death, Other)
  Sender: FDA-Public Use
  Company Number: GB-KOREA IPSEN Pharma-2021-31221

PATIENT

DRUGS (1)
  1. LANREOTIDE ACETATE [Suspect]
     Active Substance: LANREOTIDE ACETATE
     Indication: Product used for unknown indication
     Dosage: UNK
     Route: 065
     Dates: start: 201805

REACTIONS (4)
  - Death [Fatal]
  - Disease progression [Unknown]
  - Metastases to central nervous system [Unknown]
  - Liver disorder [Unknown]

NARRATIVE: CASE EVENT DATE: 20190901
